FAERS Safety Report 12850388 (Version 1)
Quarter: 2016Q4

REPORT INFORMATION
  Report Type: Spontaneous
  Country: US (occurrence: US)
  Receive Date: 20161014
  Receipt Date: 20161014
  Transmission Date: 20170207
  Serious: No
  Sender: FDA-Public Use
  Company Number: US-BAYER-2016-186059

PATIENT
  Age: 47 Year
  Sex: Male
  Weight: 215 kg

DRUGS (1)
  1. CIPRO [Suspect]
     Active Substance: CIPROFLOXACIN HYDROCHLORIDE
     Dosage: 500 TWICE DAILY
     Route: 048
     Dates: start: 20160903, end: 20160909

REACTIONS (4)
  - Arthralgia [Not Recovered/Not Resolved]
  - Joint range of motion decreased [None]
  - Adverse event [Not Recovered/Not Resolved]
  - Joint swelling [None]

NARRATIVE: CASE EVENT DATE: 20160909
